FAERS Safety Report 13940476 (Version 1)
Quarter: 2017Q3

REPORT INFORMATION
  Report Type: Spontaneous
  Country: DE (occurrence: DE)
  Receive Date: 20170906
  Receipt Date: 20170906
  Transmission Date: 20171127
  Serious: Yes (Other)
  Sender: FDA-Public Use
  Company Number: GXKR2017DE004428

PATIENT
  Age: 28 Year
  Sex: Female

DRUGS (3)
  1. SEROQUEL [Suspect]
     Active Substance: QUETIAPINE FUMARATE
     Indication: BORDERLINE PERSONALITY DISORDER
     Dosage: UNK (0 TO 31.2 GESTATIONAL WEEK)
     Route: 048
     Dates: start: 20160930, end: 20170507
  2. VENLAFAXINE [Suspect]
     Active Substance: VENLAFAXINE HYDROCHLORIDE
     Indication: BORDERLINE PERSONALITY DISORDER
     Dosage: 150 MG, QD (0 TO 31.2 GESTATIONAL WEEK)
     Route: 048
     Dates: start: 20160930, end: 20170507
  3. FOLIC ACID. [Concomitant]
     Active Substance: FOLIC ACID
     Indication: PROPHYLAXIS OF NEURAL TUBE DEFECT
     Dosage: UNK
     Route: 048

REACTIONS (1)
  - Gestational diabetes [Recovered/Resolved]
